FAERS Safety Report 13284632 (Version 1)
Quarter: 2017Q1

REPORT INFORMATION
  Report Type: Spontaneous
  Country: US (occurrence: US)
  Receive Date: 20170301
  Receipt Date: 20170301
  Transmission Date: 20170428
  Serious: Yes (Hospitalization)
  Sender: FDA-Public Use
  Company Number: US-PURDUE PHARMA-USA-2017-0136846

PATIENT
  Sex: Male

DRUGS (6)
  1. OXYCODONE HYDROCHLORIDE (SIMILAR TO NDA 22-272) [Suspect]
     Active Substance: OXYCODONE HYDROCHLORIDE
     Indication: BACK PAIN
     Dosage: 20 MG, QID
     Route: 048
     Dates: start: 2002
  2. ATIVAN [Suspect]
     Active Substance: LORAZEPAM
     Indication: SLEEP DISORDER
     Dosage: 1 MG, DAILY
     Route: 065
     Dates: start: 2015
  3. ATIVAN [Suspect]
     Active Substance: LORAZEPAM
     Indication: HYPERTENSION
  4. XIFAXAN [Suspect]
     Active Substance: RIFAXIMIN
     Indication: LIVER DISORDER
     Dosage: 2 DF, DAILY
     Route: 065
     Dates: end: 20160616
  5. XIFAXAN [Suspect]
     Active Substance: RIFAXIMIN
     Indication: ANTIBIOTIC THERAPY
  6. VIAGRA [Suspect]
     Active Substance: SILDENAFIL CITRATE
     Indication: ERECTILE DYSFUNCTION
     Dosage: 100 MG, PRN
     Route: 065
     Dates: start: 2012

REACTIONS (2)
  - Dehydration [Unknown]
  - Blood count abnormal [Unknown]
